FAERS Safety Report 6930867-4 (Version None)
Quarter: 2010Q3

REPORT INFORMATION
  Report Type: 
  Country: None (occurrence: None)
  Receive Date: 20100818
  Receipt Date: 20100805
  Transmission Date: 20110219
  Serious: Yes (Death)
  Sender: FDA-Public Use
  Company Number: US-PFIZER INC-2010064356

PATIENT
  Sex: Male

DRUGS (1)
  1. REVATIO [Suspect]
     Dosage: 40 MG, 3X/DAY
     Route: 048

REACTIONS (3)
  - CARDIAC ARREST [None]
  - ELECTROMECHANICAL DISSOCIATION [None]
  - RESPIRATORY FAILURE [None]
